FAERS Safety Report 7864058-X (Version None)
Quarter: 2011Q4

REPORT INFORMATION
  Report Type: 
  Country: None (occurrence: None)
  Receive Date: 20111028
  Receipt Date: 20111019
  Transmission Date: 20120403
  Serious: Yes (Other)
  Sender: FDA-Public Use
  Company Number: FR-JNJFOC-20111009266

PATIENT
  Age: 28 Year
  Sex: Female

DRUGS (11)
  1. REMICADE [Suspect]
     Route: 042
     Dates: start: 20050214
  2. REMICADE [Suspect]
     Dosage: 5 MG/KG
     Route: 042
     Dates: start: 20110902
  3. IMURAN [Concomitant]
     Route: 065
     Dates: start: 20110902
  4. IMURAN [Concomitant]
     Route: 065
     Dates: start: 20060316
  5. IMURAN [Concomitant]
     Route: 065
     Dates: start: 20021219
  6. THIOGUANINE [Concomitant]
     Dosage: 155 MICROMOLE/L
     Route: 065
  7. IMURAN [Concomitant]
     Route: 065
     Dates: start: 20021205
  8. REMICADE [Suspect]
     Indication: CROHN'S DISEASE
     Route: 042
     Dates: start: 20021219
  9. REMICADE [Suspect]
     Route: 042
     Dates: start: 20021205
  10. REMICADE [Suspect]
     Route: 042
     Dates: start: 20110919
  11. IMURAN [Concomitant]
     Route: 065
     Dates: start: 20050214

REACTIONS (10)
  - SENSE OF OPPRESSION [None]
  - URTICARIA [None]
  - BLOOD PRESSURE DECREASED [None]
  - HYPERSENSITIVITY [None]
  - BACK PAIN [None]
  - TREMOR [None]
  - INFUSION RELATED REACTION [None]
  - PALLOR [None]
  - NAUSEA [None]
  - ABDOMINAL PAIN [None]
